FAERS Safety Report 11427229 (Version 1)
Quarter: 2015Q3

REPORT INFORMATION
  Report Type: Spontaneous
  Country: US (occurrence: US)
  Receive Date: 20150827
  Receipt Date: 20150827
  Transmission Date: 20151125
  Serious: No
  Sender: FDA-Public Use
  Company Number: US-SA-2014SA106952

PATIENT
  Age: 48 Year
  Sex: Male
  Weight: 56.35 kg

DRUGS (16)
  1. HYDROCODONE BITARTRATE/PARACETAMOL [Concomitant]
  2. ONDANSETRON [Concomitant]
     Active Substance: ONDANSETRON
  3. ZOCOR [Concomitant]
     Active Substance: SIMVASTATIN
  4. BENADRYL [Concomitant]
     Active Substance: DIPHENHYDRAMINE HYDROCHLORIDE
     Indication: PREMEDICATION
  5. LACTULOSE. [Concomitant]
     Active Substance: LACTULOSE
  6. MIDODRINE [Concomitant]
     Active Substance: MIDODRINE
  7. RENVELA [Concomitant]
     Active Substance: SEVELAMER CARBONATE
  8. OMEPRAZOLE. [Concomitant]
     Active Substance: OMEPRAZOLE
  9. DILAUDID [Concomitant]
     Active Substance: HYDROMORPHONE HYDROCHLORIDE
  10. ALPRAZOLAM. [Concomitant]
     Active Substance: ALPRAZOLAM
  11. DEMEROL [Concomitant]
     Active Substance: MEPERIDINE HYDROCHLORIDE
     Indication: PREMEDICATION
  12. ASPIRIN. [Concomitant]
     Active Substance: ASPIRIN
  13. LORAZEPAM. [Concomitant]
     Active Substance: LORAZEPAM
  14. FABRAZYME [Suspect]
     Active Substance: AGALSIDASE BETA
     Indication: FABRY^S DISEASE
     Route: 042
  15. ACETAMINOPHEN. [Concomitant]
     Active Substance: ACETAMINOPHEN
     Indication: PREMEDICATION
  16. CLOPIDOGREL [Concomitant]
     Active Substance: CLOPIDOGREL BISULFATE

REACTIONS (2)
  - Disease progression [Not Recovered/Not Resolved]
  - Blood immunoglobulin G increased [Not Recovered/Not Resolved]

NARRATIVE: CASE EVENT DATE: 201307
